FAERS Safety Report 8795790 (Version 1)
Quarter: 2012Q4

REPORT INFORMATION
  Report Type: 
  Country: US (occurrence: US)
  Receive Date: 20120919
  Receipt Date: 20120919
  Transmission Date: 20130627
  Serious: Yes (Death)
  Sender: FDA-Public Use
  Company Number: US-BAYER-2012-096405

PATIENT
  Age: 63 Year
  Sex: Female

DRUGS (3)
  1. BETASERON [Suspect]
     Dosage: 0.25 mg, QOD
     Route: 058
  2. DEPAKOTE [Concomitant]
     Dosage: 250 mg, UNK
  3. FOSAMAX [Concomitant]
     Dosage: 70 mg, UNK

REACTIONS (1)
  - Death [Fatal]
